FAERS Safety Report 6535467-6 (Version None)
Quarter: 2010Q1

REPORT INFORMATION
  Report Type: 
  Country: None (occurrence: None)
  Receive Date: 20100111
  Receipt Date: 20100111
  Transmission Date: 20100710
  Serious: Yes (Disabling)
  Sender: FDA-Public Use
  Company Number: None

PATIENT
  Sex: Female
  Weight: 52.1637 kg

DRUGS (1)
  1. GEODON [Suspect]
     Indication: BIPOLAR DISORDER
     Dosage: 20MG 1 CAP 4X DAILY
     Dates: start: 20090122

REACTIONS (6)
  - DISTURBANCE IN ATTENTION [None]
  - DYSPNOEA [None]
  - DYSTONIA [None]
  - NERVE INJURY [None]
  - TARDIVE DYSKINESIA [None]
  - UNEVALUABLE EVENT [None]
